FAERS Safety Report 6203367-7 (Version None)
Quarter: 2009Q2

REPORT INFORMATION
  Report Type: 
  Country: None (occurrence: None)
  Receive Date: 20090527
  Receipt Date: 20090522
  Transmission Date: 20091009
  Serious: Yes (Hospitalization)
  Sender: FDA-Public Use
  Company Number: CA-AVENTIS-200816263GDDC

PATIENT
  Age: 71 Year
  Sex: Female
  Weight: 53 kg

DRUGS (26)
  1. AFLIBERCEPT [Suspect]
     Indication: NON-SMALL CELL LUNG CANCER
     Route: 042
     Dates: start: 20080613, end: 20080613
  2. DOCETAXEL [Suspect]
     Indication: NON-SMALL CELL LUNG CANCER
     Route: 042
     Dates: start: 20080613, end: 20080613
  3. FOSAMAX [Concomitant]
     Dates: start: 19881201
  4. EVISTA [Concomitant]
     Dates: start: 19881201
  5. CIPRALEX [Concomitant]
     Dates: start: 19881201
  6. CORTICOSTEROIDS [Concomitant]
  7. ESCITALOPRAM OXALATE [Concomitant]
     Dosage: DOSE QUANTITY: 2
     Route: 048
  8. RALOXIFENE HCL [Concomitant]
     Route: 048
     Dates: start: 20080625
  9. CALTRATE                           /00108001/ [Concomitant]
     Dates: start: 20080626
  10. VIT D [Concomitant]
     Dates: start: 20080626
  11. ALENDRONATE SODIUM [Concomitant]
     Dates: start: 20080619
  12. HEPARIN [Concomitant]
     Dates: start: 20080626, end: 20080719
  13. ACETAMINOPHEN [Concomitant]
     Dates: start: 20080625, end: 20080719
  14. DIMENHYDRINATE [Concomitant]
     Dates: start: 20080625, end: 20080719
  15. STOMATOLOGICALS, MOUTH PREPARATIONS [Concomitant]
     Dates: start: 20080529
  16. POTASSIUM CHLORIDE W/SODIUM CHLORIDE [Concomitant]
     Dates: start: 20080625, end: 20080704
  17. PIPERACILLIN SODIUM AND TAZOBACTAM SODIUM [Concomitant]
     Dates: start: 20080627, end: 20080707
  18. TOBRAMYCIN [Concomitant]
     Dates: start: 20080627, end: 20080702
  19. LASIX [Concomitant]
     Dates: start: 20080702, end: 20080702
  20. NATURAL TEARS [Concomitant]
     Dates: start: 20080704, end: 20080719
  21. CIPROFLOXACIN [Concomitant]
     Dates: start: 20080707, end: 20080711
  22. UNKNOWN DRUG [Concomitant]
     Dates: start: 20080707, end: 20080714
  23. FENTANYL CITRATE [Concomitant]
     Dates: start: 20080708, end: 20080708
  24. PENCILLIN [Concomitant]
     Dates: start: 20080716, end: 20080804
  25. POLYSPORIN                         /00452901/ [Concomitant]
     Dates: start: 20080707, end: 20080707
  26. ESCITALOPRAM OXALATE [Concomitant]
     Dates: start: 20080626

REACTIONS (3)
  - DEHYDRATION [None]
  - DIARRHOEA [None]
  - PNEUMONIA NECROTISING [None]
